FAERS Safety Report 8009683-0 (Version None)
Quarter: 2011Q4

REPORT INFORMATION
  Report Type: 
  Country: None (occurrence: None)
  Receive Date: 20111228
  Receipt Date: 20111221
  Transmission Date: 20120403
  Serious: No
  Sender: FDA-Public Use
  Company Number: US-BIOGENIDEC-2011BI043773

PATIENT
  Sex: Female

DRUGS (5)
  1. AVONEX [Concomitant]
     Indication: MULTIPLE SCLEROSIS
     Route: 030
  2. IMITREX [Concomitant]
     Indication: HEADACHE
  3. FIORICET [Concomitant]
     Indication: HEADACHE
  4. XANAX [Concomitant]
     Indication: ANXIETY
  5. TYSABRI [Suspect]
     Indication: MULTIPLE SCLEROSIS
     Route: 042
     Dates: start: 20100805, end: 20110909

REACTIONS (10)
  - PAIN IN EXTREMITY [None]
  - FIBROMYALGIA [None]
  - SPONDYLITIS [None]
  - FEELING ABNORMAL [None]
  - RHEUMATOID ARTHRITIS [None]
  - PAIN [None]
  - FACE INJURY [None]
  - EMOTIONAL DISORDER [None]
  - FALL [None]
  - HEADACHE [None]
